FAERS Safety Report 7137906-9 (Version None)
Quarter: 2010Q4

REPORT INFORMATION
  Report Type: 
  Country: None (occurrence: None)
  Receive Date: 20101206
  Receipt Date: 20101125
  Transmission Date: 20110411
  Serious: Yes (Other)
  Sender: FDA-Public Use
  Company Number: CA-ASTRAZENECA-2010SE56622

PATIENT
  Sex: Female

DRUGS (2)
  1. FASLODEX [Suspect]
     Route: 030
     Dates: start: 20091223
  2. PAMIDRONATE DISODIUM [Concomitant]

REACTIONS (1)
  - CARCINOEMBRYONIC ANTIGEN INCREASED [None]
